FAERS Safety Report 15722428 (Version 1)
Quarter: 2018Q4

REPORT INFORMATION
  Report Type: Spontaneous
  Country: US (occurrence: US)
  Receive Date: 20181214
  Receipt Date: 20181214
  Transmission Date: 20190205
  Serious: No
  Sender: FDA-Public Use
  Company Number: US-PFIZER INC-2018510181

PATIENT
  Age: 69 Year
  Sex: Female

DRUGS (1)
  1. CLEOCIN [Suspect]
     Active Substance: CLINDAMYCIN PHOSPHATE
     Dosage: 600 MG, UNK (TAKE 2 CAPSULES 1 HOUR PRIOR TO DENTAL APPOINTMENT)

REACTIONS (1)
  - Product use issue [Unknown]
